FAERS Safety Report 7826576-X (Version None)
Quarter: 2011Q4

REPORT INFORMATION
  Report Type: 
  Country: None (occurrence: None)
  Receive Date: 20111020
  Receipt Date: 20111010
  Transmission Date: 20120403
  Serious: No
  Sender: FDA-Public Use
  Company Number: FR-ELI_LILLY_AND_COMPANY-FR201110002375

PATIENT
  Age: 51 Year
  Sex: Female

DRUGS (4)
  1. CODEINE PHOSPHATE AND ACETAMINOPHEN [Concomitant]
     Indication: PAIN
     Dosage: UNK
     Route: 048
  2. CANDESARTAN CILEXETIL [Concomitant]
     Indication: HYPERTENSION
     Dosage: 10 MG, UNK
     Route: 048
  3. CYMBALTA [Suspect]
     Dosage: 30 MG, QD
     Route: 048
  4. CYMBALTA [Suspect]
     Indication: DEPRESSION
     Dosage: 60 MG, QD
     Route: 048
     Dates: start: 20110601

REACTIONS (6)
  - GAMMA-GLUTAMYLTRANSFERASE INCREASED [None]
  - DRUG DEPENDENCE [None]
  - DECREASED APPETITE [None]
  - WEIGHT DECREASED [None]
  - HYPERSOMNIA [None]
  - ANGER [None]
